FAERS Safety Report 25308245 (Version 2)
Quarter: 2025Q2

REPORT INFORMATION
  Report Type: Report from Study
  Country: US (occurrence: US)
  Receive Date: 20250513
  Receipt Date: 20250523
  Transmission Date: 20250716
  Serious: Yes (Hospitalization)
  Sender: MALLINCKRODT
  Company Number: US-MALLINCKRODT-MNK202501982

PATIENT
  Age: 8 Month
  Sex: Male
  Weight: 7 kg

DRUGS (4)
  1. CORTICOTROPIN [Suspect]
     Active Substance: CORTICOTROPIN
     Indication: Infantile spasms
     Route: 030
     Dates: start: 20250319, end: 2025
  2. CORTICOTROPIN [Suspect]
     Active Substance: CORTICOTROPIN
     Route: 030
     Dates: start: 2025
  3. CORTICOTROPIN [Suspect]
     Active Substance: CORTICOTROPIN
     Route: 030
     Dates: start: 2025, end: 2025
  4. CORTICOTROPIN [Suspect]
     Active Substance: CORTICOTROPIN
     Route: 030
     Dates: start: 20250429, end: 20250507

REACTIONS (5)
  - Infantile spasms [Not Recovered/Not Resolved]
  - Disease recurrence [Not Recovered/Not Resolved]
  - Gastrostomy [Unknown]
  - Eye swelling [Unknown]
  - Irritability [Unknown]

NARRATIVE: CASE EVENT DATE: 20250101
